FAERS Safety Report 23244922 (Version 2)
Quarter: 2024Q1

REPORT INFORMATION
  Report Type: Spontaneous
  Country: BR (occurrence: None)
  Receive Date: 20231130
  Receipt Date: 20240102
  Transmission Date: 20240409
  Serious: Yes (Other)
  Sender: FDA-Public Use
  Company Number: 2023A268814

PATIENT
  Sex: Female

DRUGS (10)
  1. DAPAGLIFLOZIN [Suspect]
     Active Substance: DAPAGLIFLOZIN
     Indication: Renal disorder
     Dosage: A TABLET
     Route: 048
     Dates: start: 20220101, end: 20230701
  2. ASPIRIN [Concomitant]
     Active Substance: ASPIRIN
     Indication: Anticoagulant therapy
  3. LANTUS [Concomitant]
     Active Substance: INSULIN GLARGINE
  4. APIDRA REGULAR INSULIN [Concomitant]
     Dosage: 10 IU IN THE AFTERNOON
  5. APIDRA REGULAR INSULIN [Concomitant]
     Dosage: 18 IU
  6. LOSARTAN [Concomitant]
     Active Substance: LOSARTAN
     Indication: Hypertension
     Dosage: A TABLET IN THE MORNING AND A TABLET AT NIGHT (8 PM)
  7. AMLODIPINE [Concomitant]
     Active Substance: AMLODIPINE BESYLATE
     Indication: Hypertension
     Dosage: A TABLET IN THE MORNING AND A TABLET AT NIGHT
  8. HYDROCHLOROTHIAZIDE [Concomitant]
     Active Substance: HYDROCHLOROTHIAZIDE
     Indication: Urine abnormality
     Dosage: 25.0MG UNKNOWN
  9. HYDROCHLOROTHIAZIDE [Concomitant]
     Active Substance: HYDROCHLOROTHIAZIDE
     Indication: Hypothyroidism
     Dosage: 25.0MG UNKNOWN
  10. LEVOQUISINE [Concomitant]
     Indication: Hypothyroidism
     Dosage: A TABLET AT 6:30 AM

REACTIONS (3)
  - Breast cancer female [Not Recovered/Not Resolved]
  - Renal failure [Unknown]
  - Inability to afford medication [Unknown]
